FAERS Safety Report 15975434 (Version 1)
Quarter: 2019Q1

REPORT INFORMATION
  Report Type: Spontaneous
  Country: FR (occurrence: FR)
  Receive Date: 20190218
  Receipt Date: 20190218
  Transmission Date: 20190418
  Serious: Yes (Other)
  Sender: FDA-Public Use
  Company Number: FR-SA-2019SA040575

PATIENT
  Age: 67 Year
  Sex: Female

DRUGS (2)
  1. RIFADINE [Suspect]
     Active Substance: RIFAMPIN
     Indication: SEPSIS
     Route: 048
     Dates: start: 20181024, end: 20181026
  2. IODIXANOL. [Suspect]
     Active Substance: IODIXANOL
     Indication: COMPUTERISED TOMOGRAM
     Route: 042
     Dates: start: 20181026, end: 20181026

REACTIONS (1)
  - Dermatitis exfoliative generalised [Recovered/Resolved]

NARRATIVE: CASE EVENT DATE: 20181026
